FAERS Safety Report 4842771-6 (Version None)
Quarter: 2005Q4

REPORT INFORMATION
  Report Type: 
  Country: None (occurrence: None)
  Receive Date: 20051128
  Receipt Date: 20051111
  Transmission Date: 20060501
  Serious: Yes (Hospitalization)
  Sender: FDA-Public Use
  Company Number: CLOF-10147

PATIENT
  Age: 78 Year
  Sex: Male

DRUGS (15)
  1. CLOFARABINE [Suspect]
     Indication: ACUTE MYELOID LEUKAEMIA
     Dosage: 53 MG QD X 3 IA
     Route: 013
     Dates: start: 20051003
  2. CYTARABINE [Suspect]
     Indication: ACUTE MYELOID LEUKAEMIA
     Dosage: 35 MG QD IA
     Route: 013
     Dates: start: 20051003
  3. CIPRO [Concomitant]
  4. VORICONAZOLE [Concomitant]
  5. VALTREX [Concomitant]
  6. TOPROL-XL [Concomitant]
  7. RAMIPRIL [Concomitant]
  8. HALDOL [Concomitant]
  9. MAGNESIUM PROTEIN COMPLEX [Concomitant]
  10. PROSCAR [Concomitant]
  11. SYNTHROID [Concomitant]
  12. K-DUR 10 [Concomitant]
  13. HYDRALAZINE [Concomitant]
  14. IMDUR [Concomitant]
  15. LASIX [Concomitant]

REACTIONS (2)
  - CARDIAC FAILURE CONGESTIVE [None]
  - FEBRILE NEUTROPENIA [None]
